FAERS Safety Report 7496070-7 (Version None)
Quarter: 2011Q2

REPORT INFORMATION
  Report Type: 
  Country: None (occurrence: None)
  Receive Date: 20110513
  Receipt Date: 20110505
  Transmission Date: 20111010
  Serious: Yes (Death)
  Sender: FDA-Public Use
  Company Number: TRP_07717_2011

PATIENT
  Age: 25 Year
  Sex: Female

DRUGS (3)
  1. AMPHOTERICIN B [Suspect]
     Indication: FUSARIUM INFECTION
     Dosage: 5 MG/KD/D, INTRAVENOUS (NOT OTHERWISE SPECIFIED)
     Route: 042
  2. POSACONAZOLE [Suspect]
     Indication: ANTIFUNGAL PROPHYLAXIS
     Dosage: 400 MG BID, ORAL
     Route: 048
  3. VORICONAZOLE [Suspect]
     Indication: FUSARIUM INFECTION
     Dosage: 300 MG BID, ORAL
     Route: 048

REACTIONS (19)
  - DEVICE RELATED INFECTION [None]
  - BACTERAEMIA [None]
  - LEUKAEMIA RECURRENT [None]
  - LYMPHOCYTE COUNT DECREASED [None]
  - ACUTE GRAFT VERSUS HOST DISEASE IN SKIN [None]
  - SALMONELLOSIS [None]
  - CYSTITIS HAEMORRHAGIC [None]
  - HAEMOGLOBIN DECREASED [None]
  - PLATELET COUNT DECREASED [None]
  - URINARY TRACT INFECTION [None]
  - CYTOMEGALOVIRUS VIRAEMIA [None]
  - NEUTROPHIL COUNT DECREASED [None]
  - GINGIVAL PAIN [None]
  - ACUTE GRAFT VERSUS HOST DISEASE IN INTESTINE [None]
  - GINGIVAL SWELLING [None]
  - HAEMATOCRIT DECREASED [None]
  - BLAST CELL COUNT INCREASED [None]
  - STAPHYLOCOCCAL BACTERAEMIA [None]
  - LACTOBACILLUS INFECTION [None]
